FAERS Safety Report 13675755 (Version 1)
Quarter: 2017Q2

REPORT INFORMATION
  Report Type: Report from Study
  Country: CA (occurrence: CA)
  Receive Date: 20170621
  Receipt Date: 20170621
  Transmission Date: 20170830
  Serious: Yes (Hospitalization, Other)
  Sender: FDA-Public Use
  Company Number: CA-AMGEN-CANSL2017092190

PATIENT
  Age: 78 Year
  Sex: Female

DRUGS (1)
  1. REPATHA [Suspect]
     Active Substance: EVOLOCUMAB
     Indication: PRODUCT USED FOR UNKNOWN INDICATION
     Dosage: 140 MG/ML, UNK
     Route: 065

REACTIONS (4)
  - Heart valve replacement [Not Recovered/Not Resolved]
  - Malaise [Not Recovered/Not Resolved]
  - Coronary artery bypass [Not Recovered/Not Resolved]
  - Vascular graft [Not Recovered/Not Resolved]

NARRATIVE: CASE EVENT DATE: 20170328
